FAERS Safety Report 10509637 (Version 1)
Quarter: 2014Q4

REPORT INFORMATION
  Report Type: Spontaneous
  Country: BR (occurrence: BR)
  Receive Date: 20141010
  Receipt Date: 20141010
  Transmission Date: 20150528
  Serious: Yes (Hospitalization)
  Sender: FDA-Public Use
  Company Number: BR-ROCHE-1469268

PATIENT
  Sex: Male
  Weight: 100 kg

DRUGS (2)
  1. RIVOTRIL [Suspect]
     Active Substance: CLONAZEPAM
     Route: 065
     Dates: start: 20140902
  2. RIVOTRIL [Suspect]
     Active Substance: CLONAZEPAM
     Indication: AGITATION
     Dosage: AT NIGHT
     Route: 065
     Dates: start: 2011, end: 20140901

REACTIONS (4)
  - Agitation [Not Recovered/Not Resolved]
  - Chest pain [Unknown]
  - Underdose [Unknown]
  - Venous occlusion [Unknown]
